FAERS Safety Report 20099273 (Version 2)
Quarter: 2021Q4

REPORT INFORMATION
  Report Type: Spontaneous
  Country: TH (occurrence: TH)
  Receive Date: 20211122
  Receipt Date: 20211212
  Transmission Date: 20220303
  Serious: Yes (Hospitalization)
  Sender: FDA-Public Use
  Company Number: TH-PRINSTON PHARMACEUTICAL INC.-2021PRN00406

PATIENT
  Age: 20 Year
  Sex: Female

DRUGS (13)
  1. ESCITALOPRAM [Suspect]
     Active Substance: ESCITALOPRAM OXALATE
     Dosage: 20 MG AT BEDTIME PRESCRIBED PRIOR TO OVERDOSE (10 MG TABLETS)
     Route: 048
     Dates: start: 20190919, end: 20201105
  2. ESCITALOPRAM [Suspect]
     Active Substance: ESCITALOPRAM OXALATE
     Dosage: UNKNOWN AMOUNT TAKEN IN OVERDOSE
     Route: 048
  3. BUPROPION HYDROCHLORIDE [Suspect]
     Active Substance: BUPROPION HYDROCHLORIDE
     Dosage: PRESCRIBED BEFORE OVERDOSE
     Route: 048
     Dates: start: 20190815, end: 20201117
  4. BUPROPION HYDROCHLORIDE [Suspect]
     Active Substance: BUPROPION HYDROCHLORIDE
     Dosage: UNKNOWN AMOUNT TAKEN IN OVERDOSE
     Route: 048
  5. LAMOTRIGINE [Suspect]
     Active Substance: LAMOTRIGINE
     Dosage: PRESCRIBED PRIOR TO OVERDOSE
     Route: 048
     Dates: start: 20190523, end: 20201117
  6. LAMOTRIGINE [Suspect]
     Active Substance: LAMOTRIGINE
     Dosage: UNKNOWN AMOUNT TAKEN IN OVERDOSE
     Route: 048
  7. LURASIDONE [Suspect]
     Active Substance: LURASIDONE
     Dosage: PRESCRIBED BEFORE OVERDOSE
     Route: 065
     Dates: start: 20190815, end: 20201117
  8. LURASIDONE [Suspect]
     Active Substance: LURASIDONE
     Dosage: UNKNOWN AMOUNT TAKEN IN OVERDOSE
     Route: 065
  9. VORTIOXETINE [Suspect]
     Active Substance: VORTIOXETINE
     Dosage: PRESCRIBED PRIOR TO OVERDOSE
     Route: 065
     Dates: start: 20190207, end: 20190829
  10. VORTIOXETINE [Suspect]
     Active Substance: VORTIOXETINE
     Dosage: PRESCRIBED PRIOR TO OVERDOSE
     Route: 065
     Dates: start: 20201105, end: 20201117
  11. VORTIOXETINE [Suspect]
     Active Substance: VORTIOXETINE
     Dosage: UNKNOWN AMOUNT TAKEN IN OVERDOSE
     Route: 065
  12. MIDAZOLAM [Concomitant]
     Active Substance: MIDAZOLAM
     Route: 065
  13. DIAZEPAM [Concomitant]
     Active Substance: DIAZEPAM
     Route: 065

REACTIONS (3)
  - Overdose [Recovered/Resolved]
  - Serotonin syndrome [Recovered/Resolved]
  - Encephalopathy [Recovered/Resolved]

NARRATIVE: CASE EVENT DATE: 20201117
